FAERS Safety Report 23498330 (Version 1)
Quarter: 2024Q1

REPORT INFORMATION
  Report Type: Spontaneous
  Country: CN (occurrence: CN)
  Receive Date: 20240207
  Receipt Date: 20240207
  Transmission Date: 20240410
  Serious: Yes (Other)
  Sender: FDA-Public Use
  Company Number: CN-009507513-2402CHN000938

PATIENT
  Age: 48 Year
  Sex: Male
  Weight: 60 kg

DRUGS (2)
  1. IMIPENEM AND CILASTATIN [Suspect]
     Active Substance: CILASTATIN SODIUM\IMIPENEM
     Indication: Anti-infective therapy
     Dosage: 0.5G OVER 24H
     Route: 041
     Dates: start: 20231028, end: 20231108
  2. IMIPENEM AND CILASTATIN [Suspect]
     Active Substance: CILASTATIN SODIUM\IMIPENEM
     Dosage: 0.5G IV DRIP Q6H FOR 3H
     Route: 041
     Dates: start: 20231108, end: 20231116

REACTIONS (3)
  - Neurotoxicity [Recovered/Resolved]
  - Incorrect drug administration rate [Unknown]
  - Incorrect drug administration rate [Unknown]

NARRATIVE: CASE EVENT DATE: 20231028
